FAERS Safety Report 13840823 (Version 4)
Quarter: 2018Q1

REPORT INFORMATION
  Report Type: Spontaneous
  Country: US (occurrence: US)
  Receive Date: 20170807
  Receipt Date: 20180123
  Transmission Date: 20180508
  Serious: Yes (Other)
  Sender: FDA-Public Use
  Company Number: PHEH2017US023595

PATIENT
  Age: 56 Year
  Sex: Female
  Weight: 118.7 kg

DRUGS (3)
  1. VOTRIENT [Suspect]
     Active Substance: PAZOPANIB HYDROCHLORIDE
     Indication: UTERINE CANCER
     Dosage: 200 MG, QD
     Route: 048
     Dates: start: 20170321, end: 20170720
  2. VOTRIENT [Suspect]
     Active Substance: PAZOPANIB HYDROCHLORIDE
     Dosage: 200 MG, QD
     Route: 048
     Dates: start: 20170920, end: 20171220
  3. VOTRIENT [Suspect]
     Active Substance: PAZOPANIB HYDROCHLORIDE
     Indication: SARCOMA
     Dosage: 400 MG, QD (400/200 PER DAY)
     Route: 048
     Dates: start: 20170720, end: 20170920

REACTIONS (17)
  - Oedema peripheral [Not Recovered/Not Resolved]
  - Arthralgia [Unknown]
  - Weight increased [Recovering/Resolving]
  - Urticaria [Unknown]
  - Musculoskeletal stiffness [Unknown]
  - Fatigue [Unknown]
  - Hypertensive crisis [Recovering/Resolving]
  - Joint stiffness [Recovering/Resolving]
  - Pain [Unknown]
  - Pruritus [Unknown]
  - Headache [Unknown]
  - Oedema [Recovering/Resolving]
  - Skin exfoliation [Unknown]
  - Rash papular [Unknown]
  - Malaise [Unknown]
  - Skin lesion [Unknown]
  - Myalgia [Unknown]

NARRATIVE: CASE EVENT DATE: 20170509
